FAERS Safety Report 8980187 (Version 1)
Quarter: 2012Q4

REPORT INFORMATION
  Report Type: 
  Country: US (occurrence: US)
  Receive Date: 20121221
  Receipt Date: 20121221
  Transmission Date: 20130627
  Serious: Yes (Hospitalization)
  Sender: FDA-Public Use
  Company Number: US-ABBOTT-12P-163-1021590-00

PATIENT
  Age: 41 None
  Sex: Female
  Weight: 68.1 kg

DRUGS (3)
  1. HUMIRA [Suspect]
     Indication: CROHN^S DISEASE
     Route: 058
     Dates: start: 2008
  2. 6-MP [Suspect]
     Indication: CROHN^S DISEASE
  3. 6-MP [Suspect]
     Indication: COLITIS ULCERATIVE

REACTIONS (5)
  - Colitis ulcerative [Recovered/Resolved]
  - Crohn^s disease [Recovered/Resolved]
  - Influenza [Recovered/Resolved]
  - Stress [Recovered/Resolved]
  - Drug dose omission [Recovered/Resolved]
